FAERS Safety Report 24797195 (Version 3)
Quarter: 2025Q1

REPORT INFORMATION
  Report Type: Report from Study
  Country: US (occurrence: US)
  Receive Date: 20250101
  Receipt Date: 20250218
  Transmission Date: 20250409
  Serious: Yes (Hospitalization)
  Sender: UCB
  Company Number: US-UCBSA-2024057522

PATIENT
  Age: 15 Year
  Sex: Male
  Weight: 58.96 kg

DRUGS (3)
  1. FINTEPLA [Interacting]
     Active Substance: FENFLURAMINE
     Indication: Lennox-Gastaut syndrome
     Dosage: 5.9 MILLILITER, 2X/DAY (BID)
     Dates: start: 20240515
  2. FINTEPLA [Interacting]
     Active Substance: FENFLURAMINE
     Dosage: 5.9 MILLILITER, 2X/DAY (BID)
     Dates: start: 20240516
  3. FINTEPLA [Interacting]
     Active Substance: FENFLURAMINE
     Dosage: 5.9 MILLILITER, 2X/DAY (BID)

REACTIONS (4)
  - Behaviour disorder [Not Recovered/Not Resolved]
  - Hospitalisation [Not Recovered/Not Resolved]
  - Ear infection [Recovered/Resolved]
  - Drug interaction [Unknown]

NARRATIVE: CASE EVENT DATE: 20241018
